FAERS Safety Report 19997072 (Version 1)
Quarter: 2021Q4

REPORT INFORMATION
  Report Type: Spontaneous
  Country: US (occurrence: US)
  Receive Date: 20211026
  Receipt Date: 20211026
  Transmission Date: 20220303
  Serious: Yes (Other)
  Sender: FDA-Public Use
  Company Number: None

PATIENT
  Age: 58 Year
  Sex: Male
  Weight: 145 kg

DRUGS (13)
  1. REGEN-COV [Suspect]
     Active Substance: CASIRIVIMAB\IMDEVIMAB
     Indication: COVID-19
     Route: 042
     Dates: start: 20211019, end: 20211019
  2. ALLOPURINOL [Concomitant]
     Active Substance: ALLOPURINOL
  3. AMITRIPTYLINE [Concomitant]
     Active Substance: AMITRIPTYLINE
  4. ATORVASTATIN [Concomitant]
     Active Substance: ATORVASTATIN
  5. ASPIRIN [Concomitant]
     Active Substance: ASPIRIN
  6. BENZONATATE [Concomitant]
     Active Substance: BENZONATATE
  7. DICYCLOMINE [Concomitant]
     Active Substance: DICYCLOMINE HYDROCHLORIDE
  8. insulin lispro and glargine [Concomitant]
  9. LIRAGLUTIDE [Concomitant]
     Active Substance: LIRAGLUTIDE
  10. LOSARTAN [Concomitant]
     Active Substance: LOSARTAN
  11. METFORMIN [Concomitant]
     Active Substance: METFORMIN HYDROCHLORIDE
  12. PROPRANOLOL [Concomitant]
     Active Substance: PROPRANOLOL HYDROCHLORIDE
  13. TOPIRAMATE [Concomitant]
     Active Substance: TOPIRAMATE

REACTIONS (17)
  - Fatigue [None]
  - Dysphonia [None]
  - Dizziness [None]
  - Pain [None]
  - Chills [None]
  - Myalgia [None]
  - Diarrhoea [None]
  - Cough [None]
  - Haemoptysis [None]
  - Oropharyngeal pain [None]
  - Headache [None]
  - Confusional state [None]
  - Feeling abnormal [None]
  - COVID-19 pneumonia [None]
  - Thrombocytopenia [None]
  - Aspartate aminotransferase increased [None]
  - Alanine aminotransferase increased [None]

NARRATIVE: CASE EVENT DATE: 20211021
